FAERS Safety Report 6616380-2 (Version None)
Quarter: 2010Q1

REPORT INFORMATION
  Report Type: 
  Country: None (occurrence: None)
  Receive Date: 20100305
  Receipt Date: 20100226
  Transmission Date: 20100710
  Serious: Yes (Disabling)
  Sender: FDA-Public Use
  Company Number: FR-JNJFOC-20100211040

PATIENT
  Age: 31 Year
  Sex: Female

DRUGS (6)
  1. RISPERDAL [Suspect]
     Indication: SCHIZOPHRENIA
     Route: 048
  2. CONTRACEPTIVE [Suspect]
     Indication: CONTRACEPTION
     Route: 065
  3. RIVOTRIL [Concomitant]
     Route: 065
  4. ARTANE [Concomitant]
     Route: 065
  5. THERALENE [Concomitant]
     Route: 065
  6. STILNOX [Concomitant]
     Route: 065

REACTIONS (3)
  - CEREBROVASCULAR ACCIDENT [None]
  - CONDITION AGGRAVATED [None]
  - TREATMENT NONCOMPLIANCE [None]
